FAERS Safety Report 6005117-6 (Version None)
Quarter: 2008Q4

REPORT INFORMATION
  Report Type: 
  Country: None (occurrence: None)
  Receive Date: 20081215
  Receipt Date: 20081130
  Transmission Date: 20090506
  Serious: Yes (Hospitalization)
  Sender: FDA-Public Use
  Company Number: KV200800716

PATIENT
  Age: 78 Year
  Sex: Female
  Weight: 102 kg

DRUGS (7)
  1. ISOSORBIDE MONONITRATE [Suspect]
     Indication: ANGINA PECTORIS
     Dosage: 60 MG, QD, ORAL
     Route: 048
  2. COREG [Concomitant]
  3. COUMADIN [Concomitant]
  4. LISINOPRIL [Concomitant]
  5. LASIX [Concomitant]
  6. ZOCOR [Concomitant]
  7. ALBUTEROL [Concomitant]

REACTIONS (3)
  - ASTHENIA [None]
  - ORTHOSTATIC HYPOTENSION [None]
  - PRODUCT QUALITY ISSUE [None]
